FAERS Safety Report 8794216 (Version 1)
Quarter: 2012Q4

REPORT INFORMATION
  Report Type: 
  Country: ES (occurrence: ES)
  Receive Date: 20120917
  Receipt Date: 20120917
  Transmission Date: 20130627
  Serious: Yes (Hospitalization)
  Sender: FDA-Public Use
  Company Number: ES-ELI_LILLY_AND_COMPANY-ES201207005094

PATIENT
  Sex: Male

DRUGS (1)
  1. FORSTEO [Suspect]
     Dosage: UNK, unknown
     Dates: start: 20120523

REACTIONS (3)
  - Infection [Unknown]
  - Adverse event [Unknown]
  - Injection site haematoma [Unknown]
